FAERS Safety Report 8961724 (Version 1)
Quarter: 2012Q4

REPORT INFORMATION
  Report Type: 
  Country: GB (occurrence: GB)
  Receive Date: 20121213
  Receipt Date: 20121213
  Transmission Date: 20130627
  Serious: Yes (Hospitalization)
  Sender: FDA-Public Use
  Company Number: GB-JNJFOC-20121204296

PATIENT
  Age: 59 Year
  Sex: Female

DRUGS (5)
  1. XARELTO [Suspect]
     Indication: PROPHYLAXIS
     Route: 048
     Dates: start: 20121029, end: 20121112
  2. SOLIFENACIN [Concomitant]
     Indication: INCONTINENCE
     Route: 048
  3. QVAR [Concomitant]
     Indication: ASTHMA
     Route: 065
  4. BECONASE [Concomitant]
     Indication: ASTHMA
     Route: 045
  5. FUROSEMIDE [Concomitant]
     Indication: OEDEMA
     Route: 048
     Dates: start: 201203, end: 20121112

REACTIONS (2)
  - Rash vesicular [Not Recovered/Not Resolved]
  - Cellulitis [Not Recovered/Not Resolved]
